FAERS Safety Report 9825905 (Version 2)
Quarter: 2014Q1

REPORT INFORMATION
  Report Type: Spontaneous
  Country: US (occurrence: None)
  Receive Date: 20140115
  Receipt Date: 20140128
  Transmission Date: 20141002
  Serious: Yes (Other)
  Sender: FDA-Public Use
  Company Number: 2014EXPUS00165

PATIENT
  Age: 68 Year
  Sex: Female
  Weight: 73.9 kg

DRUGS (1)
  1. EXPAREL [Suspect]
     Indication: POSTOPERATIVE ANALGESIA
     Route: 030

REACTIONS (2)
  - Paralysis [None]
  - Peripheral nerve palsy [None]
